FAERS Safety Report 8276425-3 (Version None)
Quarter: 2012Q2

REPORT INFORMATION
  Report Type: 
  Country: None (occurrence: None)
  Receive Date: 20120412
  Receipt Date: 20120409
  Transmission Date: 20120825
  Serious: Yes (Death)
  Sender: FDA-Public Use
  Company Number: BR-SANOFI-AVENTIS-2012SA024957

PATIENT
  Age: 58 Year
  Sex: Female

DRUGS (5)
  1. ACETYLSALICYLIC ACID SRT [Concomitant]
  2. SUSTRATE [Suspect]
     Dosage: PATIENT TAKES TWO TABLETS OF 10 MG DAILY.
     Route: 048
     Dates: start: 20110101
  3. DRUG USED IN DIABETES [Concomitant]
  4. ATENOLOL AND CHLORTHALIDONE [Suspect]
     Route: 065
  5. METOPROLOL SUCCINATE [Suspect]
     Route: 065

REACTIONS (2)
  - HYPERSENSITIVITY [None]
  - CARDIO-RESPIRATORY ARREST [None]
